FAERS Safety Report 10296686 (Version 2)
Quarter: 2014Q3

REPORT INFORMATION
  Report Type: Report from Study
  Country: CA (occurrence: CA)
  Receive Date: 20140710
  Receipt Date: 20140910
  Transmission Date: 20150326
  Serious: Yes (Other)
  Sender: FDA-Public Use
  Company Number: CA-BAXTER-2014BAX038750

PATIENT
  Sex: Male

DRUGS (3)
  1. GAMMAGARD LIQUID [Suspect]
     Active Substance: HUMAN IMMUNOGLOBULIN G
     Indication: KAWASAKI^S DISEASE
     Dosage: 2 G/KG FOR 1 DAY OF 1 G/KG FOR 2 DAYS
     Route: 042
  2. PREDNISOLONE. [Suspect]
     Active Substance: PREDNISOLONE
     Indication: KAWASAKI^S DISEASE
     Dosage: IN 3 DIVIDED DOSES
     Route: 042
  3. ASPIRIN. [Suspect]
     Active Substance: ASPIRIN
     Indication: PYREXIA
     Route: 065

REACTIONS (1)
  - No therapeutic response [Unknown]
